FAERS Safety Report 12214742 (Version 1)
Quarter: 2016Q1

REPORT INFORMATION
  Report Type: Spontaneous
  Country: BR (occurrence: BR)
  Receive Date: 20160328
  Receipt Date: 20160328
  Transmission Date: 20160526
  Serious: Yes (Other)
  Sender: FDA-Public Use
  Company Number: BR-BAYER-2016-054207

PATIENT
  Sex: Female

DRUGS (2)
  1. MIRENA [Suspect]
     Active Substance: LEVONORGESTREL
     Indication: CONTRACEPTION
     Dosage: 20 MCG/24HR, CONT
     Route: 015
     Dates: start: 20140821, end: 20160309
  2. YASMIN [Suspect]
     Active Substance: DROSPIRENONE\ETHINYL ESTRADIOL
     Dosage: 1 DF, QD
     Route: 048
     Dates: start: 20160211, end: 20160308

REACTIONS (10)
  - Vaginal haemorrhage [None]
  - Device dislocation [Recovered/Resolved]
  - Abdominal pain [Recovered/Resolved]
  - Adnexa uteri pain [Recovered/Resolved]
  - Headache [Not Recovered/Not Resolved]
  - Ovarian enlargement [None]
  - Uterine pain [Recovered/Resolved]
  - Amenorrhoea [None]
  - Uterine spasm [Recovered/Resolved]
  - Uterine inflammation [Recovered/Resolved]

NARRATIVE: CASE EVENT DATE: 20140821
